FAERS Safety Report 8795552 (Version 2)
Quarter: 2012Q4

REPORT INFORMATION
  Report Type: 
  Country: BR (occurrence: BR)
  Receive Date: 20120917
  Receipt Date: 20120921
  Transmission Date: 20130627
  Serious: Yes (Other)
  Sender: FDA-Public Use
  Company Number: BR-JNJFOC-20120905275

PATIENT
  Sex: Female
  Weight: 54 kg

DRUGS (4)
  1. NICORETTE ICE MINT [Suspect]
     Indication: SMOKING CESSATION THERAPY
     Route: 048
  2. NICORETTE ICE MINT [Suspect]
     Indication: SMOKING CESSATION THERAPY
     Route: 048
  3. NICORETTE ICE MINT [Suspect]
     Indication: SMOKING CESSATION THERAPY
     Route: 048
     Dates: start: 2009
  4. UNKNOWN MEDICATION [Concomitant]
     Indication: OSTEOPOROSIS
     Route: 048
     Dates: start: 2010

REACTIONS (6)
  - Nicotine dependence [Recovered/Resolved]
  - Incorrect drug administration duration [Unknown]
  - Withdrawal syndrome [Recovered/Resolved]
  - Wrong technique in drug usage process [Unknown]
  - Retching [Recovered/Resolved]
  - Defaecation urgency [Recovered/Resolved]
